FAERS Safety Report 17233231 (Version 3)
Quarter: 2020Q3

REPORT INFORMATION
  Report Type: Spontaneous
  Country: DE (occurrence: DE)
  Receive Date: 20200104
  Receipt Date: 20200827
  Transmission Date: 20201102
  Serious: Yes (Hospitalization, Other)
  Sender: FDA-Public Use
  Company Number: DE-SUN PHARMACEUTICAL INDUSTRIES LTD-2019RR-232249

PATIENT
  Age: 75 Year
  Sex: Male

DRUGS (4)
  1. PIRFENISONE [Interacting]
     Active Substance: PIRFENIDONE
     Dosage: 534 MILLIGRAM, TID, WEEK 2
     Route: 065
  2. PIRFENISONE [Interacting]
     Active Substance: PIRFENIDONE
     Dosage: 801 MILLIGRAM, TID, WEEK 3 AND ONWARDS
     Route: 065
  3. ESOMEPRAZOLE. [Suspect]
     Active Substance: ESOMEPRAZOLE MAGNESIUM
     Indication: GASTROOESOPHAGEAL REFLUX DISEASE
     Dosage: 40 MILLIGRAM, DAILY
     Route: 065
  4. PIRFENISONE [Interacting]
     Active Substance: PIRFENIDONE
     Indication: IDIOPATHIC PULMONARY FIBROSIS
     Dosage: 267 MILLIGRAM, TID, WEEK 1
     Route: 065

REACTIONS (2)
  - Drug interaction [Unknown]
  - Drug-induced liver injury [Not Recovered/Not Resolved]
